FAERS Safety Report 16229691 (Version 1)
Quarter: 2019Q2

REPORT INFORMATION
  Report Type: Spontaneous
  Country: GB (occurrence: GB)
  Receive Date: 20190423
  Receipt Date: 20190423
  Transmission Date: 20190711
  Serious: Yes (Other)
  Sender: FDA-Public Use
  Company Number: GB-ASTRAZENECA-2019SE57564

PATIENT
  Age: 46 Year
  Sex: Male
  Weight: 87 kg

DRUGS (11)
  1. PARACETAMOL [Concomitant]
     Active Substance: ACETAMINOPHEN
     Dosage: 2 TO BE TAKEN 4 TIMES A DAY
     Dates: start: 20180920
  2. METFORMIN [Concomitant]
     Active Substance: METFORMIN HYDROCHLORIDE
     Dosage: TAKE 2 WITH EVENING MEAL, INCREASE TO 4
     Dates: start: 20190128
  3. IBUPROFEN. [Concomitant]
     Active Substance: IBUPROFEN
     Dosage: HALF TO ONE TO BE TAKEN 3 TIMES A DAY
     Dates: start: 20180920
  4. HUMULIN L [Concomitant]
     Active Substance: INSULIN HUMAN
     Dosage: USE AS DIRECTED
     Dates: start: 20180920, end: 20190325
  5. TADALAFIL. [Concomitant]
     Active Substance: TADALAFIL
     Dosage: 1 TO BE TAKEN 30 MINUTES PRIOR TO ACTIVITY
     Dates: start: 20180920
  6. OMEPRAZOLE. [Concomitant]
     Active Substance: OMEPRAZOLE
     Dates: start: 20180920
  7. DAPAGLIFLOZIN. [Suspect]
     Active Substance: DAPAGLIFLOZIN
     Route: 048
     Dates: start: 20190212, end: 20190325
  8. SERTRALINE [Concomitant]
     Active Substance: SERTRALINE HYDROCHLORIDE
     Dates: start: 20181025
  9. HUMULIN M3 [Concomitant]
     Active Substance: INSULIN HUMAN
     Dosage: USE AS DIRECTED
     Dates: start: 20190325
  10. ATORVASTATIN [Concomitant]
     Active Substance: ATORVASTATIN
     Indication: HYPERCHOLESTEROLAEMIA
     Dates: start: 20180920
  11. BETAMETHASONE VALERATE. [Concomitant]
     Active Substance: BETAMETHASONE VALERATE
     Dosage: APPLY SPARINGLY TO THE AFFECTED AREA(S)
     Dates: start: 20190204, end: 20190218

REACTIONS (1)
  - Ketosis [Recovered/Resolved]
